FAERS Safety Report 16253679 (Version 1)
Quarter: 2019Q2

REPORT INFORMATION
  Report Type: Spontaneous
  Country: FR (occurrence: FR)
  Receive Date: 20190430
  Receipt Date: 20190430
  Transmission Date: 20190711
  Serious: Yes (Life-Threatening)
  Sender: FDA-Public Use
  Company Number: FR-TEVA-2019-FR-1043055

PATIENT
  Age: 68 Year
  Sex: Female
  Weight: 88.5 kg

DRUGS (7)
  1. GLIMEPIRIDE. [Concomitant]
     Active Substance: GLIMEPIRIDE
  2. NOVORAPID [Concomitant]
     Active Substance: INSULIN ASPART
  3. DICLOFENAC [Suspect]
     Active Substance: DICLOFENAC
     Indication: ARTHRALGIA
     Dosage: 2 DOSAGE FORMS DAILY;
     Route: 003
     Dates: start: 20180730, end: 20190311
  4. BIPRETERAX [Suspect]
     Active Substance: INDAPAMIDE\PERINDOPRIL
     Indication: HYPERTENSION
     Route: 048
     Dates: start: 2014, end: 20190311
  5. CELEBREX [Suspect]
     Active Substance: CELECOXIB
     Indication: ARTHRALGIA
     Dosage: 100 MILLIGRAM DAILY;
     Route: 048
     Dates: start: 20180730, end: 20190311
  6. METFORMINE [Concomitant]
     Active Substance: METFORMIN HYDROCHLORIDE
  7. LYRICA [Suspect]
     Active Substance: PREGABALIN
     Indication: NEURALGIA
     Dosage: 3 DOSAGE FORMS DAILY;
     Route: 048
     Dates: start: 2014, end: 20190311

REACTIONS (1)
  - Haemorrhagic stroke [Recovering/Resolving]

NARRATIVE: CASE EVENT DATE: 20190311
